FAERS Safety Report 9485462 (Version 2)
Quarter: 2013Q4

REPORT INFORMATION
  Report Type: Spontaneous
  Country: US (occurrence: US)
  Receive Date: 20130829
  Receipt Date: 20131028
  Transmission Date: 20140711
  Serious: Yes (Hospitalization)
  Sender: FDA-Public Use
  Company Number: US-BIOGENIDEC-2013BI078905

PATIENT
  Age: 65 Year
  Sex: Male

DRUGS (2)
  1. TYSABRI [Suspect]
     Indication: CROHN^S DISEASE
     Route: 042
     Dates: start: 20100503, end: 20130715
  2. TYSABRI [Suspect]
     Indication: CROHN^S DISEASE
     Route: 042

REACTIONS (6)
  - Pulmonary embolism [Unknown]
  - Bronchiectasis [Unknown]
  - Chronic obstructive pulmonary disease [Not Recovered/Not Resolved]
  - Pneumonia aspiration [Not Recovered/Not Resolved]
  - Dyspnoea [Unknown]
  - Chest pain [Unknown]
